FAERS Safety Report 14195047 (Version 6)
Quarter: 2020Q2

REPORT INFORMATION
  Report Type: Spontaneous
  Country: CL (occurrence: CL)
  Receive Date: 20171116
  Receipt Date: 20200506
  Transmission Date: 20200713
  Serious: Yes (Other)
  Sender: FDA-Public Use
  Company Number: CL-SA-2017SA221612

PATIENT
  Age: 35 Year
  Sex: Female

DRUGS (2)
  1. FABRAZYME [Suspect]
     Active Substance: AGALSIDASE BETA
     Indication: FABRY^S DISEASE
     Dosage: 105 MG,QOW
     Route: 041
  2. FABRAZYME [Suspect]
     Active Substance: AGALSIDASE BETA
     Dosage: 105 MG,QOW
     Route: 041

REACTIONS (5)
  - Blood pressure systolic increased [Unknown]
  - Dysuria [Recovered/Resolved]
  - Sensory loss [Recovered/Resolved]
  - Urinary tract infection [Unknown]
  - Hemiplegia [Recovered/Resolved]

NARRATIVE: CASE EVENT DATE: 20171104
